FAERS Safety Report 19646611 (Version 1)
Quarter: 2021Q3

REPORT INFORMATION
  Report Type: Spontaneous
  Country: GB (occurrence: GB)
  Receive Date: 20210802
  Receipt Date: 20210802
  Transmission Date: 20211014
  Serious: Yes (Other)
  Sender: FDA-Public Use
  Company Number: GB-MYLANLABS-2021M1045540

PATIENT
  Age: 61 Year
  Sex: Female

DRUGS (9)
  1. COD LIVER OIL [Concomitant]
     Active Substance: COD LIVER OIL
     Indication: ILL-DEFINED DISORDER
     Dosage: UNK
  2. GINGER                             /01646601/ [Concomitant]
     Active Substance: GINGER
     Indication: ILL-DEFINED DISORDER
     Dosage: UNK
  3. GLUCOSAMINE SULPHATE [Concomitant]
     Active Substance: GLUCOSAMINE
     Indication: ILL-DEFINED DISORDER
     Dosage: UNK
  4. CETIRIZINE [Suspect]
     Active Substance: CETIRIZINE HYDROCHLORIDE
     Indication: PRODUCT USED FOR UNKNOWN INDICATION
     Dosage: UNK
     Dates: end: 20210607
  5. LORATADINE. [Concomitant]
     Active Substance: LORATADINE
     Indication: ILL-DEFINED DISORDER
     Dosage: UNK
     Dates: start: 20210608
  6. TURMERIC                           /01079601/ [Concomitant]
     Active Substance: HERBALS\TURMERIC
     Indication: ILL-DEFINED DISORDER
     Dosage: UNK
  7. LEVOTHYROXINE SODIUM. [Suspect]
     Active Substance: LEVOTHYROXINE SODIUM
     Indication: HYPOTHYROIDISM
     Dosage: ONE TABLET EACH MORNING MONDAY TO FRIDAY; TWO TABLETS ON SATURDAY AND SUNDAY
     Route: 048
     Dates: start: 2019
  8. OXYBUTYNIN HYDROCHLORIDE [Concomitant]
     Active Substance: OXYBUTYNIN CHLORIDE
     Indication: ILL-DEFINED DISORDER
     Dosage: UNK
  9. VITAMIN D                          /00107901/ [Concomitant]
     Active Substance: ERGOCALCIFEROL
     Indication: ILL-DEFINED DISORDER
     Dosage: UNK

REACTIONS (12)
  - Chest discomfort [Unknown]
  - Cough [Unknown]
  - Weight increased [Unknown]
  - Rhinorrhoea [Unknown]
  - Drug ineffective [Unknown]
  - Memory impairment [Unknown]
  - Hypersomnia [Unknown]
  - Dyspnoea [Unknown]
  - Urticaria [Unknown]
  - Wheezing [Unknown]
  - Hypersensitivity [Unknown]
  - Fatigue [Unknown]

NARRATIVE: CASE EVENT DATE: 2019
